FAERS Safety Report 7608396-4 (Version None)
Quarter: 2011Q3

REPORT INFORMATION
  Report Type: 
  Country: None (occurrence: None)
  Receive Date: 20110714
  Receipt Date: 20110705
  Transmission Date: 20111222
  Serious: Yes (Other)
  Sender: FDA-Public Use
  Company Number: JP-ASTRAZENECA-2011SE40686

PATIENT
  Age: 77 Year
  Sex: Male

DRUGS (1)
  1. SYMBICORT [Suspect]
     Indication: ASTHMA
     Dosage: 160 UG
     Route: 055
     Dates: start: 20110117, end: 20110516

REACTIONS (2)
  - STOMATITIS [None]
  - DYSGEUSIA [None]
